FAERS Safety Report 20339494 (Version 1)
Quarter: 2022Q1

REPORT INFORMATION
  Report Type: Other
  Country: CA (occurrence: CA)
  Receive Date: 20220117
  Receipt Date: 20220117
  Transmission Date: 20220424
  Serious: Yes (Hospitalization, Other)
  Sender: FDA-Public Use
  Company Number: CA-CELLTRION INC.-2022CA000151

PATIENT

DRUGS (16)
  1. RITUXIMAB [Suspect]
     Active Substance: RITUXIMAB
     Indication: Rheumatoid arthritis
     Dosage: 1000.0 MILLIGRAM
     Route: 041
  2. BILBERRY [VACCINIUM MYRTILLUS] [Concomitant]
  3. CALCIUM [Concomitant]
     Active Substance: CALCIUM
  4. ENALAPRIL [Concomitant]
     Active Substance: ENALAPRIL
  5. GABAPENTIN [Concomitant]
     Active Substance: GABAPENTIN
  6. GLUCOSAMINE [Concomitant]
     Active Substance: GLUCOSAMINE
  7. IRON [Concomitant]
     Active Substance: IRON
  8. KRILL OIL [Concomitant]
     Active Substance: DIETARY SUPPLEMENT\KRILL OIL
  9. ONDANSETRON [Concomitant]
     Active Substance: ONDANSETRON
     Indication: Nausea
  10. ORENCIA [Concomitant]
     Active Substance: ABATACEPT
     Route: 042
  11. PRAMIPEXOLE [Concomitant]
     Active Substance: PRAMIPEXOLE
  12. PREDNISONE [Concomitant]
     Active Substance: PREDNISONE
     Dosage: 5.0 MILLIGRAM
  13. RISEDRONATE SODIUM [Concomitant]
     Active Substance: RISEDRONATE SODIUM
  14. UBIQUINOL [Concomitant]
     Active Substance: UBIQUINOL
  15. VITAMIN D3 [Concomitant]
     Active Substance: CHOLECALCIFEROL
  16. ZEAXANTHIN [Concomitant]
     Active Substance: ZEAXANTHIN

REACTIONS (8)
  - Arthropathy [Not Recovered/Not Resolved]
  - Impaired healing [Not Recovered/Not Resolved]
  - Joint swelling [Not Recovered/Not Resolved]
  - Limb injury [Not Recovered/Not Resolved]
  - Confusional state [Not Recovered/Not Resolved]
  - Arthritis infective [Not Recovered/Not Resolved]
  - Diarrhoea [Not Recovered/Not Resolved]
  - Nausea [Not Recovered/Not Resolved]
